FAERS Safety Report 7204515-2 (Version None)
Quarter: 2010Q4

REPORT INFORMATION
  Report Type: 
  Country: None (occurrence: None)
  Receive Date: 20101230
  Receipt Date: 20101222
  Transmission Date: 20110411
  Serious: Yes (Other)
  Sender: FDA-Public Use
  Company Number: US-ABBOTT-10P-163-0693485-00

PATIENT
  Sex: Female
  Weight: 71.732 kg

DRUGS (18)
  1. HUMIRA [Suspect]
     Indication: RHEUMATOID ARTHRITIS
     Dates: start: 20100702, end: 20101108
  2. DILAUDID [Concomitant]
     Indication: BACK INJURY
     Dates: start: 20000101
  3. HYDROCODEINE [Concomitant]
     Indication: PAIN
  4. GABAPENTIN [Concomitant]
     Indication: NERVE INJURY
  5. FUROSEMIDE [Concomitant]
     Indication: SWELLING
  6. SPIRONOLACTONE [Concomitant]
     Indication: SWELLING
  7. SERTRALINE HYDROCHLORIDE [Concomitant]
     Indication: DEPRESSION
  8. SIMVASTATIN [Concomitant]
     Indication: BLOOD CHOLESTEROL INCREASED
  9. BACLOFEN [Concomitant]
     Indication: MYOSITIS
  10. BACLOFEN [Concomitant]
     Indication: PAIN
  11. FOSAMAX [Concomitant]
     Indication: OSTEOPOROSIS
     Dates: start: 20060101
  12. KLOR-CON [Concomitant]
     Indication: MINERAL SUPPLEMENTATION
  13. MAGNESIUM [Concomitant]
     Indication: MINERAL SUPPLEMENTATION
  14. FOLIC ACID [Concomitant]
     Indication: VITAMIN SUPPLEMENTATION
  15. PILOCARPINE [Concomitant]
     Indication: DRY MOUTH
  16. LEVOTHYROXINE [Concomitant]
     Indication: HYPOTHYROIDISM
  17. ADVAIR [Concomitant]
     Indication: ASTHMA
  18. PROVENTIL [Concomitant]
     Indication: ASTHMA

REACTIONS (7)
  - GAIT DISTURBANCE [None]
  - MULTIPLE SCLEROSIS [None]
  - MUSCULOSKELETAL DISORDER [None]
  - MYOSITIS [None]
  - NEURITIS [None]
  - PAIN [None]
  - RHEUMATOID ARTHRITIS [None]
